FAERS Safety Report 7115246-1 (Version None)
Quarter: 2010Q4

REPORT INFORMATION
  Report Type: 
  Country: None (occurrence: None)
  Receive Date: 20101122
  Receipt Date: 20100701
  Transmission Date: 20110411
  Serious: No
  Sender: FDA-Public Use
  Company Number: A0863071A

PATIENT
  Age: 11 Year
  Sex: Male

DRUGS (2)
  1. EVOCLIN [Suspect]
     Indication: FOLLICULITIS
     Dosage: 1APP AT NIGHT
     Route: 061
     Dates: start: 20100401, end: 20100603
  2. NO CONCURRENT MEDICATION [Concomitant]

REACTIONS (4)
  - APPLICATION SITE PAIN [None]
  - BURNING SENSATION [None]
  - DRUG INEFFECTIVE [None]
  - PAIN [None]
